FAERS Safety Report 15061778 (Version 2)
Quarter: 2018Q4

REPORT INFORMATION
  Report Type: Report from Study
  Country: US (occurrence: US)
  Receive Date: 20180625
  Receipt Date: 20181026
  Transmission Date: 20190204
  Serious: Yes (Other)
  Sender: FDA-Public Use
  Company Number: US-ROCHE-2122246

PATIENT
  Age: 29 Year
  Sex: Female
  Weight: 117.13 kg

DRUGS (8)
  1. DIALYVITE VITAMIN D [Concomitant]
     Dosage: DOSE: 5000, UNIT NOT REPORTED
     Route: 048
  2. LUTEIN [Concomitant]
     Active Substance: LUTEIN
     Route: 048
  3. OCREVUS [Suspect]
     Active Substance: OCRELIZUMAB
     Route: 042
  4. TURMERIC [Concomitant]
     Active Substance: HERBALS\TURMERIC
     Route: 048
  5. COENZYME Q10 [Concomitant]
     Active Substance: UBIDECARENONE
     Route: 048
  6. FISH OIL [Concomitant]
     Active Substance: FISH OIL
     Route: 048
  7. OCREVUS [Suspect]
     Active Substance: OCRELIZUMAB
     Indication: MULTIPLE SCLEROSIS
     Dosage: 17/MAY/2018: SECOND HALF
     Route: 042
     Dates: start: 20180503
  8. VITAMIN B12 [Concomitant]
     Active Substance: CYANOCOBALAMIN
     Route: 048

REACTIONS (5)
  - Hepatitis [Unknown]
  - Pruritus [Recovered/Resolved]
  - Gallbladder hypofunction [Unknown]
  - Abdominal pain upper [Not Recovered/Not Resolved]
  - Abdominal discomfort [Recovered/Resolved]

NARRATIVE: CASE EVENT DATE: 20180503
